FAERS Safety Report 25327732 (Version 1)
Quarter: 2025Q2

REPORT INFORMATION
  Report Type: Spontaneous
  Country: SK (occurrence: SK)
  Receive Date: 20250517
  Receipt Date: 20250517
  Transmission Date: 20250717
  Serious: Yes (Hospitalization, Other)
  Sender: MERCK SHARP & DOHME LLC
  Company Number: SK-009507513-2285970

PATIENT
  Age: 77 Year
  Sex: Male

DRUGS (4)
  1. PEMBROLIZUMAB [Suspect]
     Active Substance: PEMBROLIZUMAB
     Indication: Non-small cell lung cancer
     Dates: start: 20191128, end: 202102
  2. PEMBROLIZUMAB [Suspect]
     Active Substance: PEMBROLIZUMAB
     Indication: Non-small cell lung cancer
     Dates: start: 20210421, end: 20210421
  3. PEMBROLIZUMAB [Suspect]
     Active Substance: PEMBROLIZUMAB
     Indication: Non-small cell lung cancer
     Dates: start: 202103, end: 2021
  4. PEMBROLIZUMAB [Suspect]
     Active Substance: PEMBROLIZUMAB
     Indication: Non-small cell lung cancer
     Dates: start: 202108, end: 202302

REACTIONS (16)
  - Colitis [Unknown]
  - Pruritus [Unknown]
  - Diverticulum intestinal [Unknown]
  - Diarrhoea [Unknown]
  - Lung consolidation [Unknown]
  - White blood cell disorder [Unknown]
  - Gastrointestinal wall thickening [Unknown]
  - C-reactive protein increased [Unknown]
  - Dehydration [Unknown]
  - Mineral deficiency [Unknown]
  - Weight decreased [Unknown]
  - Pyrexia [Unknown]
  - Hypokalaemia [Unknown]
  - C-reactive protein increased [Unknown]
  - Fibroma [Unknown]
  - Diarrhoea [Unknown]

NARRATIVE: CASE EVENT DATE: 20191128
